FAERS Safety Report 5974945-5 (Version None)
Quarter: 2008Q4

REPORT INFORMATION
  Report Type: 
  Country: None (occurrence: None)
  Receive Date: 20081202
  Receipt Date: 20081124
  Transmission Date: 20090506
  Serious: Yes (Hospitalization)
  Sender: FDA-Public Use
  Company Number: GB-RANBAXY-2008RR-19512

PATIENT
  Age: 39 Year
  Sex: Female

DRUGS (5)
  1. CLARITHROMYCIN [Suspect]
     Dosage: 500 MG, BID
     Route: 048
     Dates: start: 20080606
  2. PREDNISOLONE [Suspect]
     Indication: BRONCHOSPASM
     Dosage: 5 MG, Q4H
     Route: 048
     Dates: start: 20080529, end: 20080615
  3. PREDNISOLONE [Suspect]
     Indication: LOWER RESPIRATORY TRACT INFECTION
  4. CHLORPROMAZINE [Concomitant]
     Dosage: 25 MG, UNK
     Route: 048
     Dates: start: 20080616, end: 20080630
  5. DIAZEPAM [Concomitant]
     Dosage: 5 MG, PRN
     Route: 048
     Dates: start: 20080616, end: 20080630

REACTIONS (4)
  - DEPRESSED LEVEL OF CONSCIOUSNESS [None]
  - DISORIENTATION [None]
  - ENCEPHALITIS VIRAL [None]
  - PSYCHOTIC DISORDER [None]
